FAERS Safety Report 25181147 (Version 1)
Quarter: 2025Q2

REPORT INFORMATION
  Report Type: Spontaneous
  Country: US (occurrence: US)
  Receive Date: 20250410
  Receipt Date: 20250410
  Transmission Date: 20250716
  Serious: No
  Sender: SANOFI AVENTIS
  Company Number: US-SA-2025SA102569

PATIENT
  Age: 12 Year
  Sex: Male
  Weight: 37.27 kg

DRUGS (1)
  1. DUPIXENT [Suspect]
     Active Substance: DUPILUMAB
     Indication: Bronchopulmonary aspergillosis allergic
     Dosage: 200 MG, QOW
     Route: 058

REACTIONS (1)
  - Off label use [Unknown]
